FAERS Safety Report 22207695 (Version 1)
Quarter: 2023Q2

REPORT INFORMATION
  Report Type: Spontaneous
  Country: US (occurrence: US)
  Receive Date: 20230413
  Receipt Date: 20230413
  Transmission Date: 20230722
  Serious: Yes (Other)
  Sender: FDA-Public Use
  Company Number: US-TEVA-2023-US-2876995

PATIENT
  Age: 67 Year
  Sex: Male

DRUGS (10)
  1. PREDNISONE [Suspect]
     Active Substance: PREDNISONE
     Indication: Acute graft versus host disease
     Dosage: 80 MILLIGRAM DAILY;
     Route: 065
  2. PREDNISONE [Suspect]
     Active Substance: PREDNISONE
     Dosage: 40 MILLIGRAM DAILY; TAPERED OFF OVER 4 WEEKS
     Route: 065
  3. MYCOPHENOLATE MOFETIL [Suspect]
     Active Substance: MYCOPHENOLATE MOFETIL
     Indication: Acute graft versus host disease
     Dosage: 1000 MILLIGRAM DAILY; TAPERED OFF OVER 4 WEEKS
     Route: 065
  4. DOXYCYCLINE [Suspect]
     Active Substance: DOXYCYCLINE
     Indication: Transient acantholytic dermatosis
     Route: 048
  5. ACITRETIN [Suspect]
     Active Substance: ACITRETIN
     Indication: Transient acantholytic dermatosis
     Dosage: 10 MILLIGRAM DAILY;
     Route: 065
  6. ACITRETIN [Suspect]
     Active Substance: ACITRETIN
     Indication: Chronic graft versus host disease in skin
     Dosage: 25 MILLIGRAM DAILY;
     Route: 065
  7. TACROLIMUS [Concomitant]
     Active Substance: TACROLIMUS
     Indication: Immunosuppressant drug therapy
     Dosage: 2 MILLIGRAM DAILY;
     Route: 065
  8. TACROLIMUS [Concomitant]
     Active Substance: TACROLIMUS
     Dosage: 1 MILLIGRAM DAILY;
     Route: 065
  9. RUXOLITINIB [Concomitant]
     Active Substance: RUXOLITINIB
     Indication: Acute graft versus host disease
     Dosage: 20 MILLIGRAM DAILY;
     Route: 065
  10. CALCIPOTRIENE [Concomitant]
     Active Substance: CALCIPOTRIENE
     Indication: Transient acantholytic dermatosis
     Route: 061

REACTIONS (5)
  - Dry eye [Unknown]
  - Rash [Recovering/Resolving]
  - Rebound effect [Unknown]
  - Drug ineffective [Unknown]
  - Off label use [Unknown]
